FAERS Safety Report 19882202 (Version 1)
Quarter: 2021Q3

REPORT INFORMATION
  Report Type: Spontaneous
  Country: GB (occurrence: GB)
  Receive Date: 20210924
  Receipt Date: 20210924
  Transmission Date: 20211014
  Serious: Yes (Other)
  Sender: FDA-Public Use
  Company Number: GB-ASCEND THERAPEUTICS US, LLC-2118794

PATIENT
  Age: 48 Year
  Sex: Female
  Weight: 63.5 kg

DRUGS (9)
  1. ESTROGEL [Suspect]
     Active Substance: ESTRADIOL
  2. OESTROGEL(ESTRADIOL) [Suspect]
     Active Substance: ESTRADIOL
     Route: 061
     Dates: start: 20210902, end: 202109
  3. ESTROGEL [Suspect]
     Active Substance: ESTRADIOL
     Route: 065
  4. NASAL SPRAY(XYLOMETAZOLINE HYDROCHLORIDE) [Concomitant]
     Route: 065
  5. VAGIFEM [Concomitant]
     Active Substance: ESTRADIOL
     Route: 065
  6. AMOXICILLAN [Concomitant]
     Active Substance: AMOXICILLIN
     Route: 065
  7. MAXITROL [Concomitant]
     Active Substance: DEXAMETHASONE\NEOMYCIN SULFATE\POLYMYXIN B SULFATE
     Route: 065
  8. ESTROGEL [Suspect]
     Active Substance: ESTRADIOL
     Indication: MENOPAUSE
     Route: 061
     Dates: start: 20210902, end: 202109
  9. OESTROGEL(ESTRADIOL) [Suspect]
     Active Substance: ESTRADIOL
     Route: 061
     Dates: start: 202109

REACTIONS (13)
  - Sinus disorder [Recovered/Resolved]
  - Breast pain [Not Recovered/Not Resolved]
  - Dry eye [Not Recovered/Not Resolved]
  - Head discomfort [Recovered/Resolved]
  - Dry mouth [Not Recovered/Not Resolved]
  - Hot flush [Not Recovered/Not Resolved]
  - Chills [Not Recovered/Not Resolved]
  - Headache [Not Recovered/Not Resolved]
  - Hyperaesthesia teeth [Unknown]
  - Condition aggravated [Unknown]
  - Dermal absorption impaired [Unknown]
  - Product quality issue [Unknown]
  - Ocular hyperaemia [Unknown]

NARRATIVE: CASE EVENT DATE: 2021
